FAERS Safety Report 6794747-X (Version None)
Quarter: 2010Q2

REPORT INFORMATION
  Report Type: 
  Country: None (occurrence: None)
  Receive Date: 20100625
  Receipt Date: 20100616
  Transmission Date: 20101027
  Serious: Yes (Hospitalization, Other)
  Sender: FDA-Public Use
  Company Number: FR-BRISTOL-MYERS SQUIBB COMPANY-15153471

PATIENT
  Age: 32 Year
  Sex: Female

DRUGS (6)
  1. REYATAZ [Suspect]
     Indication: HIV INFECTION
     Dates: start: 20100217, end: 20100503
  2. ISENTRESS [Suspect]
     Indication: HIV INFECTION
     Dates: start: 20100217, end: 20100503
  3. TRUVADA [Suspect]
     Indication: HIV INFECTION
     Dosage: 1 DF:200MG/245MG
     Dates: start: 20100217, end: 20100503
  4. MALOCIDE [Suspect]
     Indication: TOXOPLASMOSIS
     Dates: start: 20100211, end: 20100426
  5. ADIAZINE [Suspect]
     Indication: TOXOPLASMOSIS
     Dates: start: 20100211
  6. CLINDAMYCIN HCL [Concomitant]

REACTIONS (2)
  - DRUG RASH WITH EOSINOPHILIA AND SYSTEMIC SYMPTOMS [None]
  - STAPHYLOCOCCAL INFECTION [None]
